FAERS Safety Report 13021370 (Version 3)
Quarter: 2017Q2

REPORT INFORMATION
  Report Type: Spontaneous
  Country: FR (occurrence: FR)
  Receive Date: 20161213
  Receipt Date: 20170628
  Transmission Date: 20170830
  Serious: Yes (Life-Threatening, Hospitalization, Other)
  Sender: FDA-Public Use
  Company Number: FR-ALEXION-A201609598

PATIENT
  Age: 11 Month
  Sex: Female
  Weight: 11.6 kg

DRUGS (7)
  1. VEDROP [Concomitant]
     Indication: PRODUCT USED FOR UNKNOWN INDICATION
     Dosage: 3 ML, QD
     Route: 065
  2. SOLIRIS [Suspect]
     Active Substance: ECULIZUMAB
     Indication: HAEMOLYTIC URAEMIC SYNDROME
  3. SOLIRIS [Suspect]
     Active Substance: ECULIZUMAB
     Indication: OFF LABEL USE
  4. URSOFALK [Concomitant]
     Active Substance: URSODIOL
     Indication: PRODUCT USED FOR UNKNOWN INDICATION
     Dosage: 5 ML, QD 2.5 ML MORNING AND NIGHT
     Route: 065
  5. SOLIRIS [Suspect]
     Active Substance: ECULIZUMAB
     Indication: ESCHERICHIA TEST POSITIVE
     Dosage: 300 MG, UNK
     Route: 042
     Dates: start: 20160709, end: 20160718
  6. ZYMAD [Concomitant]
     Active Substance: CHOLECALCIFEROL
     Indication: PRODUCT USED FOR UNKNOWN INDICATION
     Dosage: 3 DROPS PER DAY
     Route: 065
  7. RENITEC                            /00574902/ [Concomitant]
     Active Substance: ENALAPRIL MALEATE
     Indication: PRODUCT USED FOR UNKNOWN INDICATION
     Dosage: 5 MG, QD
     Route: 065

REACTIONS (9)
  - Enterobacter sepsis [Recovered/Resolved]
  - Hepatic failure [Recovering/Resolving]
  - Pyrexia [Unknown]
  - Off label use [Unknown]
  - Cholestatic liver injury [Recovering/Resolving]
  - Cardiac cirrhosis [Unknown]
  - Amblyopia [Unknown]
  - Hyperhomocysteinaemia [Unknown]
  - Cholangitis chronic [Unknown]

NARRATIVE: CASE EVENT DATE: 20160709
